FAERS Safety Report 4752471-9 (Version None)
Quarter: 2005Q3

REPORT INFORMATION
  Report Type: 
  Country: None (occurrence: None)
  Receive Date: 20050825
  Receipt Date: 20050708
  Transmission Date: 20060218
  Serious: Yes (Hospitalization, Other)
  Sender: FDA-Public Use
  Company Number: FR-GILEAD-2005-0008526

PATIENT
  Age: 45 Year
  Sex: Female

DRUGS (12)
  1. VIREAD [Suspect]
     Route: 048
     Dates: end: 20050301
  2. VIREAD [Suspect]
     Route: 048
     Dates: start: 20050308
  3. NORVIR [Suspect]
     Route: 048
     Dates: end: 20050301
  4. NORVIR [Suspect]
     Route: 048
     Dates: start: 20050308
  5. TELZIR [Suspect]
     Route: 048
     Dates: end: 20050301
  6. TELZIR [Suspect]
     Route: 048
     Dates: start: 20050308
  7. ZERIT [Suspect]
     Route: 048
     Dates: end: 20050301
  8. ZERIT [Suspect]
     Route: 048
     Dates: start: 20050308
  9. DEPAMIDE [Suspect]
     Route: 048
     Dates: start: 20050308
  10. EFFEXOR [Suspect]
     Indication: DEPRESSION
     Route: 048
     Dates: start: 20050308
  11. RETROVIR [Concomitant]
     Dates: start: 20050318
  12. ZIAGEN [Concomitant]
     Dates: end: 20050318

REACTIONS (4)
  - ANGIONEUROTIC OEDEMA [None]
  - DYSPNOEA [None]
  - RASH [None]
  - URTICARIA [None]
